FAERS Safety Report 14911280 (Version 1)
Quarter: 2018Q2

REPORT INFORMATION
  Report Type: Spontaneous
  Country: US (occurrence: US)
  Receive Date: 20180518
  Receipt Date: 20180518
  Transmission Date: 20180711
  Serious: No
  Sender: FDA-Public Use
  Company Number: US-CELGENEUS-USA-20180505294

PATIENT
  Age: 76 Year
  Sex: Female
  Weight: 53.12 kg

DRUGS (2)
  1. POMALYST [Suspect]
     Active Substance: POMALIDOMIDE
     Dosage: 4 MILLIGRAM
     Route: 048
     Dates: start: 20171003
  2. POMALYST [Suspect]
     Active Substance: POMALIDOMIDE
     Indication: PLASMA CELL MYELOMA
     Dosage: 2 MILLIGRAM
     Route: 048
     Dates: start: 201708

REACTIONS (5)
  - White blood cell count decreased [Unknown]
  - Weight decreased [Unknown]
  - Dry mouth [Not Recovered/Not Resolved]
  - Decreased appetite [Unknown]
  - Hypotension [Unknown]

NARRATIVE: CASE EVENT DATE: 201804
